FAERS Safety Report 4498174-X (Version None)
Quarter: 2004Q3

REPORT INFORMATION
  Report Type: 
  Country: None (occurrence: None)
  Receive Date: 20040927
  Receipt Date: 20040604
  Transmission Date: 20050211
  Serious: No
  Sender: FDA-Public Use
  Company Number: USA040669357

PATIENT
  Age: 53 Year
  Sex: Female
  Weight: 55 kg

DRUGS (9)
  1. STRATTERA [Suspect]
     Indication: ATTENTION DEFICIT/HYPERACTIVITY DISORDER
     Dosage: 40 MG DAY
     Dates: start: 20040521
  2. MYSOLINE [Concomitant]
  3. INDERAL [Concomitant]
  4. PHENOBARBITAL TAB [Concomitant]
  5. PREMPRO [Concomitant]
  6. ACIPHEX [Concomitant]
  7. EFFEXOR [Concomitant]
  8. VALIUM [Concomitant]
  9. RITALIN [Concomitant]

REACTIONS (8)
  - CONFUSIONAL STATE [None]
  - DEPRESSION [None]
  - DRUG INEFFECTIVE [None]
  - EAR INFECTION [None]
  - FEELING ABNORMAL [None]
  - MEMORY IMPAIRMENT [None]
  - SINUSITIS [None]
  - WEIGHT DECREASED [None]
